FAERS Safety Report 7713825-1 (Version None)
Quarter: 2011Q3

REPORT INFORMATION
  Report Type: 
  Country: None (occurrence: None)
  Receive Date: 20110826
  Receipt Date: 20110823
  Transmission Date: 20111222
  Serious: Yes (Other)
  Sender: FDA-Public Use
  Company Number: US-PFIZER INC-2011196452

PATIENT
  Age: 50 Year
  Sex: Female

DRUGS (4)
  1. ASENAPINE [Suspect]
     Dosage: 5 MG, 2X/DAY
     Dates: end: 20110701
  2. NEURONTIN [Suspect]
     Dosage: 300 MG, 1X/DAY
     Dates: end: 20110701
  3. NEURONTIN [Suspect]
     Dosage: 600 MG, UNK
     Dates: start: 20110701
  4. ASENAPINE [Suspect]
     Dosage: 10 MG, UNK
     Dates: start: 20110701, end: 20110701

REACTIONS (1)
  - SEDATION [None]
